FAERS Safety Report 20210176 (Version 1)
Quarter: 2021Q4

REPORT INFORMATION
  Report Type: Other
  Country: IN (occurrence: None)
  Receive Date: 20211221
  Receipt Date: 20211221
  Transmission Date: 20220303
  Serious: Yes (Death, Other)
  Sender: FDA-Public Use
  Company Number: IN-ROCHE-2269066

PATIENT
  Age: 44 Year
  Sex: Female

DRUGS (2)
  1. KADCYLA [Suspect]
     Active Substance: ADO-TRASTUZUMAB EMTANSINE
     Indication: Breast cancer metastatic
     Route: 042
     Dates: start: 20180404, end: 201909
  2. KADCYLA [Suspect]
     Active Substance: ADO-TRASTUZUMAB EMTANSINE
     Indication: Breast cancer metastatic

REACTIONS (10)
  - Death [Fatal]
  - Asthenia [Unknown]
  - Skin lesion [Unknown]
  - Pain [Unknown]
  - Platelet count decreased [Unknown]
  - Eye pain [Unknown]
  - Fungal infection [Unknown]
  - Cough [Unknown]
  - Nasopharyngitis [Unknown]
  - Headache [Unknown]

NARRATIVE: CASE EVENT DATE: 20211206
